FAERS Safety Report 6258136-9 (Version None)
Quarter: 2009Q3

REPORT INFORMATION
  Report Type: 
  Country: None (occurrence: None)
  Receive Date: 20090702
  Receipt Date: 20090702
  Transmission Date: 20100115
  Serious: Yes (Hospitalization)
  Sender: FDA-Public Use
  Company Number: None

PATIENT
  Sex: Male
  Weight: 113.5 kg

DRUGS (4)
  1. CASODEX [Suspect]
     Dosage: 50 MG
  2. TAXOTERE [Suspect]
     Dosage: 1087 MG
  3. LEUPROLIDE ACETATE [Suspect]
     Dosage: 10.8 MG
  4. PREDNISONE TAB [Suspect]
     Dosage: 10 MG

REACTIONS (10)
  - ASTHENIA [None]
  - DECREASED APPETITE [None]
  - DIABETES MELLITUS INADEQUATE CONTROL [None]
  - DIABETIC KETOACIDOSIS [None]
  - FATIGUE [None]
  - MYOCARDIAL INFARCTION [None]
  - NAUSEA [None]
  - POLLAKIURIA [None]
  - THIRST [None]
  - WEIGHT DECREASED [None]
